FAERS Safety Report 10853458 (Version 1)
Quarter: 2015Q1

REPORT INFORMATION
  Report Type: Spontaneous
  Country: US (occurrence: US)
  Receive Date: 20150223
  Receipt Date: 20150223
  Transmission Date: 20150721
  Serious: No
  Sender: FDA-Public Use
  Company Number: US-BIOGENIDEC-2015BI012662

PATIENT
  Age: 38 Year
  Sex: Female

DRUGS (8)
  1. IMMODIUM A-D [Concomitant]
  2. AMANTADINE HCI [Concomitant]
  3. LORAZEPAM. [Concomitant]
     Active Substance: LORAZEPAM
  4. ALEVE [Concomitant]
     Active Substance: NAPROXEN SODIUM
  5. PEPTO-BISMOL [Concomitant]
     Active Substance: BISMUTH SUBSALICYLATE\CALCIUM CARBONATE
  6. TYLENOL [Concomitant]
     Active Substance: ACETAMINOPHEN
  7. TECFIDERA [Suspect]
     Active Substance: DIMETHYL FUMARATE
     Indication: MULTIPLE SCLEROSIS
     Route: 048
     Dates: start: 20131219
  8. BACLOFEN. [Concomitant]
     Active Substance: BACLOFEN

REACTIONS (1)
  - Vitamin D decreased [Unknown]

NARRATIVE: CASE EVENT DATE: 20150123
